FAERS Safety Report 5266138-4 (Version None)
Quarter: 2007Q1

REPORT INFORMATION
  Report Type: 
  Country: None (occurrence: None)
  Receive Date: 20070305
  Receipt Date: 20070223
  Transmission Date: 20070707
  Serious: Yes (Hospitalization)
  Sender: FDA-Public Use
  Company Number: 2007308882

PATIENT
  Sex: Female

DRUGS (2)
  1. REGAINE 2% (MINOXIDIL) [Suspect]
     Dosage: 1 ML ONCE, TOPICAL
     Route: 061
     Dates: start: 20070101, end: 20070101
  2. ANITHYPERTENSIVES (ANTIHYPERTENSIVES) [Concomitant]

REACTIONS (1)
  - CIRCULATORY COLLAPSE [None]
